FAERS Safety Report 9034706 (Version 1)
Quarter: 2013Q1

REPORT INFORMATION
  Report Type: Spontaneous
  Country: FR (occurrence: None)
  Receive Date: 20130118
  Receipt Date: 20130118
  Transmission Date: 20140127
  Serious: Yes (Hospitalization)
  Sender: FDA-Public Use
  Company Number: FR-1196098

PATIENT
  Age: 93 Year
  Sex: Male

DRUGS (8)
  1. TOBREX [Suspect]
     Route: 047
  2. LUCENTIS [Suspect]
     Dosage: (1% TOTAL )
     Route: 031
     Dates: start: 20120831, end: 20120831
  3. LEVOFLOXACINE [Suspect]
     Route: 048
     Dates: start: 20120831, end: 20120831
  4. MYDRIATICUM [Suspect]
     Route: 047
     Dates: start: 20120831, end: 20120831
  5. TETRACAINE [Suspect]
     Dates: start: 20120831, end: 20120831
  6. AZYTER [Suspect]
     Dates: start: 20120831, end: 20120831
  7. NEOSYNEPHRINE [Suspect]
     Dates: start: 20120831, end: 20120831
  8. STERDEX [Suspect]
     Dosage: (1 DF TOTAL
     Route: 047
     Dates: start: 20120831

REACTIONS (3)
  - Dermatitis exfoliative [None]
  - Toxic skin eruption [None]
  - Face oedema [None]
